FAERS Safety Report 8342638-5 (Version None)
Quarter: 2012Q2

REPORT INFORMATION
  Report Type: 
  Country: None (occurrence: None)
  Receive Date: 20120508
  Receipt Date: 20120430
  Transmission Date: 20120825
  Serious: No
  Sender: FDA-Public Use
  Company Number: US-BIOGENIDEC-2012BI015632

PATIENT
  Age: 40 Year
  Sex: Male

DRUGS (1)
  1. TYSABRI [Suspect]
     Indication: MULTIPLE SCLEROSIS
     Route: 042
     Dates: start: 20081215

REACTIONS (11)
  - MEMORY IMPAIRMENT [None]
  - SINUS DISORDER [None]
  - VISION BLURRED [None]
  - TINNITUS [None]
  - HEARING IMPAIRED [None]
  - VISUAL IMPAIRMENT [None]
  - ASTHENIA [None]
  - FATIGUE [None]
  - SOMNOLENCE [None]
  - APATHY [None]
  - DIZZINESS [None]
